FAERS Safety Report 13752794 (Version 1)
Quarter: 2017Q3

REPORT INFORMATION
  Report Type: Spontaneous
  Country: US (occurrence: US)
  Receive Date: 20170713
  Receipt Date: 20170713
  Transmission Date: 20171127
  Serious: Yes (Life-Threatening, Hospitalization, Disabling)
  Sender: FDA-Public Use
  Company Number: None

PATIENT
  Age: 25 Year
  Sex: Female
  Weight: 67.5 kg

DRUGS (1)
  1. ALPRAZOLAM. [Suspect]
     Active Substance: ALPRAZOLAM
     Indication: SOCIAL ANXIETY DISORDER
     Dosage: ?          OTHER STRENGTH:MG;QUANTITY:45 TABLET(S);?
     Route: 048
     Dates: start: 20160405

REACTIONS (11)
  - Seizure [None]
  - Paraesthesia [None]
  - Derealisation [None]
  - Cold sweat [None]
  - Nervous system disorder [None]
  - Drug tolerance [None]
  - Impaired driving ability [None]
  - Anxiety [None]
  - Depersonalisation/derealisation disorder [None]
  - Withdrawal syndrome [None]
  - Vertigo [None]

NARRATIVE: CASE EVENT DATE: 20160405
